FAERS Safety Report 5757568-2 (Version None)
Quarter: 2008Q2

REPORT INFORMATION
  Report Type: 
  Country: None (occurrence: None)
  Receive Date: 20080529
  Receipt Date: 20080513
  Transmission Date: 20081010
  Serious: Yes (Other)
  Sender: FDA-Public Use
  Company Number: JPI-P-003653

PATIENT
  Age: 38 Year
  Sex: Female

DRUGS (2)
  1. LUVOX [Suspect]
     Indication: SOCIAL PHOBIA
     Dosage: 50 MG, 1 D, ORAL
     Route: 048
     Dates: start: 20060418, end: 20070104
  2. ETHYL LOFLAZEPATE (ETHYL LOFLAZEPATE) [Concomitant]

REACTIONS (4)
  - ABORTION SPONTANEOUS [None]
  - DRUG EXPOSURE DURING PREGNANCY [None]
  - MATERNAL DRUGS AFFECTING FOETUS [None]
  - PREGNANCY [None]
